FAERS Safety Report 9008327 (Version 2)
Quarter: 2013Q1

REPORT INFORMATION
  Report Type: Spontaneous
  Country: US (occurrence: None)
  Receive Date: 20121227
  Receipt Date: 20130208
  Transmission Date: 20140127
  Serious: Yes (Death, Other)
  Sender: FDA-Public Use
  Company Number: TPA2012A10012

PATIENT
  Age: 69 Year
  Sex: Male
  Weight: 83.92 kg

DRUGS (8)
  1. ACTOS [Suspect]
     Indication: TYPE 2 DIABETES MELLITUS
     Dates: start: 20010511, end: 20050202
  2. METFORMIN (METFORMIN) [Concomitant]
  3. GLUCOPHAGE (METFORMIN HYDROCHLORIDE) [Concomitant]
  4. PRANDIN (REPAGLINIDE) (REPAGLINIDE) [Concomitant]
  5. LISPRO (INSULIN LISPRO) [Concomitant]
  6. LANTUS (INSULIN GLARGINE) [Concomitant]
  7. LEVEMIR (INSULIN DETEMIR) [Concomitant]
  8. GLUCOTROL (GLIPIZIDE) [Concomitant]

REACTIONS (3)
  - Bladder cancer [None]
  - Hydronephrosis [None]
  - Nephrolithiasis [None]
